FAERS Safety Report 7122050-7 (Version None)
Quarter: 2010Q4

REPORT INFORMATION
  Report Type: 
  Country: None (occurrence: None)
  Receive Date: 20101124
  Receipt Date: 20101116
  Transmission Date: 20110411
  Serious: Yes (Congenital Anomaly)
  Sender: FDA-Public Use
  Company Number: B0684637A

PATIENT
  Sex: Male
  Weight: 3.6 kg

DRUGS (6)
  1. AZANTAC [Suspect]
     Dates: start: 20061101
  2. MONAZOL [Suspect]
     Indication: FUNGAL INFECTION
     Dates: start: 20060801
  3. FLAGYL [Suspect]
     Dates: start: 20060901
  4. FLUCONAZOLE [Suspect]
     Indication: CANDIDIASIS
     Dates: start: 20061001
  5. TARDYFERON B9 [Suspect]
     Dates: start: 20061101
  6. FASIGYNE [Suspect]
     Dates: start: 20061001

REACTIONS (3)
  - CONGENITAL ANOMALY [None]
  - DRUG EXPOSURE DURING PREGNANCY [None]
  - VIITH NERVE PARALYSIS [None]
